FAERS Safety Report 5019094-8 (Version None)
Quarter: 2006Q2

REPORT INFORMATION
  Report Type: 
  Country: None (occurrence: None)
  Receive Date: 20060531
  Receipt Date: 20060522
  Transmission Date: 20061013
  Serious: Yes (Other)
  Sender: FDA-Public Use
  Company Number: 2006066890

PATIENT
  Age: 65 Year
  Sex: Male
  Weight: 86.1834 kg

DRUGS (13)
  1. TIKOSYN [Suspect]
     Indication: ATRIAL FLUTTER
     Dosage: 1000 MCG (500 MCG, BID INTERVAL: EVERY DAY), ORAL
     Route: 048
     Dates: start: 20030101
  2. TOPROL-XL [Concomitant]
  3. MICARDIS [Concomitant]
  4. MAVIK [Concomitant]
  5. NORVASC [Concomitant]
  6. PROSCAR [Concomitant]
  7. ZOCOR [Concomitant]
  8. ZETIA [Concomitant]
  9. ALDACTONE [Concomitant]
  10. LASIX [Concomitant]
  11. ACETYLSALICYLIC ACID SRT [Concomitant]
  12. POTASSIUM [Concomitant]
  13. COENZYME Q10 [Concomitant]

REACTIONS (1)
  - ARRHYTHMIA [None]
